FAERS Safety Report 6208698-2 (Version None)
Quarter: 2009Q2

REPORT INFORMATION
  Report Type: 
  Country: None (occurrence: None)
  Receive Date: 20090529
  Receipt Date: 20090518
  Transmission Date: 20091009
  Serious: Yes (Death, Other)
  Sender: FDA-Public Use
  Company Number: CN-PFIZER INC-2009215815

PATIENT
  Age: 71 Year

DRUGS (13)
  1. LIPITOR [Suspect]
     Dosage: 20 MG, 1X/DAY
     Route: 048
     Dates: start: 20090423, end: 20090505
  2. LESCOL [Suspect]
     Dosage: UNK
     Dates: start: 20090505, end: 20090508
  3. PLAVIX [Concomitant]
     Dosage: UNK
     Route: 048
     Dates: end: 20090501
  4. PLAVIX [Concomitant]
     Route: 048
     Dates: start: 20090101, end: 20090101
  5. ASPIRIN [Concomitant]
     Route: 048
     Dates: start: 20090421, end: 20090501
  6. ISOSORBIDE DINITRATE [Concomitant]
     Dosage: UNK
     Dates: end: 20090501
  7. ACERDIL [Concomitant]
     Dosage: UNK
     Route: 048
     Dates: end: 20090501
  8. PLASMA [Concomitant]
     Dates: start: 20090423, end: 20090501
  9. METOPROLOL TARTRATE [Concomitant]
     Dosage: UNK
     Route: 048
     Dates: end: 20090501
  10. DIGOXIN [Concomitant]
     Route: 048
     Dates: end: 20090501
  11. OMEPRAZOLE [Concomitant]
     Route: 048
     Dates: start: 20090423, end: 20090501
  12. FUROSEMIDE [Concomitant]
     Route: 048
     Dates: end: 20090501
  13. SPIRONOLACTONE [Concomitant]
     Route: 048
     Dates: end: 20090501

REACTIONS (8)
  - CARDIAC ARREST [None]
  - CARDIAC FAILURE ACUTE [None]
  - DISSEMINATED INTRAVASCULAR COAGULATION [None]
  - HEPATIC FUNCTION ABNORMAL [None]
  - RENAL FAILURE [None]
  - RESPIRATORY FAILURE [None]
  - RHABDOMYOLYSIS [None]
  - SHOCK [None]
